FAERS Safety Report 10050478 (Version 1)
Quarter: 2014Q2

REPORT INFORMATION
  Report Type: Spontaneous
  Country: US (occurrence: US)
  Receive Date: 20140401
  Receipt Date: 20140401
  Transmission Date: 20141212
  Serious: No
  Sender: FDA-Public Use
  Company Number: US-ASTRAZENECA-2013SE78804

PATIENT
  Age: 73 Year
  Sex: Female
  Weight: 79.4 kg

DRUGS (4)
  1. NEXIUM [Suspect]
     Indication: GASTROOESOPHAGEAL REFLUX DISEASE
     Route: 048
     Dates: start: 2003, end: 201308
  2. NEXIUM [Suspect]
     Indication: GASTROOESOPHAGEAL REFLUX DISEASE
     Route: 048
     Dates: start: 201308
  3. ANTIBIOTICS [Suspect]
     Route: 065
  4. SYNTHROID [Concomitant]
     Indication: THYROID CANCER
     Dosage: .125MCG DAILY
     Route: 048
     Dates: start: 2009

REACTIONS (7)
  - Hyperchlorhydria [Unknown]
  - Gastrooesophageal reflux disease [Unknown]
  - Lyme disease [Unknown]
  - Nausea [Unknown]
  - Abdominal pain upper [Unknown]
  - Abdominal discomfort [Unknown]
  - Off label use [Unknown]
